FAERS Safety Report 24340764 (Version 1)
Quarter: 2024Q3

REPORT INFORMATION
  Report Type: Spontaneous
  Country: US (occurrence: US)
  Receive Date: 20240919
  Receipt Date: 20240919
  Transmission Date: 20241017
  Serious: No
  Sender: MYLAN
  Company Number: US-MYLANLABS-2024M1083012

PATIENT
  Sex: Male

DRUGS (11)
  1. GABAPENTIN [Suspect]
     Active Substance: GABAPENTIN
     Indication: Presyncope
     Dosage: UNK
     Route: 065
  2. GABAPENTIN [Suspect]
     Active Substance: GABAPENTIN
     Indication: Dizziness
  3. GABAPENTIN [Suspect]
     Active Substance: GABAPENTIN
     Indication: Vertigo
  4. GABAPENTIN [Suspect]
     Active Substance: GABAPENTIN
     Indication: Dizziness
  5. GABAPENTIN [Suspect]
     Active Substance: GABAPENTIN
     Indication: Nausea
  6. GABAPENTIN [Suspect]
     Active Substance: GABAPENTIN
     Indication: Hypertension
  7. GABAPENTIN [Suspect]
     Active Substance: GABAPENTIN
     Indication: Palpitations
  8. GABAPENTIN [Suspect]
     Active Substance: GABAPENTIN
     Indication: Neck pain
  9. GABAPENTIN [Suspect]
     Active Substance: GABAPENTIN
     Indication: Migraine
  10. GABAPENTIN [Suspect]
     Active Substance: GABAPENTIN
     Indication: Anxiety
  11. GABAPENTIN [Suspect]
     Active Substance: GABAPENTIN
     Indication: Panic attack

REACTIONS (1)
  - Off label use [Unknown]
